FAERS Safety Report 8165359-0 (Version None)
Quarter: 2012Q1

REPORT INFORMATION
  Report Type: 
  Country: None (occurrence: None)
  Receive Date: 20120227
  Receipt Date: 20110615
  Transmission Date: 20120608
  Serious: No
  Sender: FDA-Public Use
  Company Number: US-MYLANLABS-2011S1012626

PATIENT
  Age: 52 Year
  Sex: Male

DRUGS (4)
  1. LISINOPRIL [Concomitant]
  2. GLIMEPIRIDE [Concomitant]
  3. SIMVASTATIN [Concomitant]
  4. METFORMIN HCL [Suspect]
     Indication: DIABETES MELLITUS
     Route: 048
     Dates: start: 20110101

REACTIONS (2)
  - BLOOD GLUCOSE INCREASED [None]
  - DRUG INEFFECTIVE [None]
